FAERS Safety Report 12570886 (Version 1)
Quarter: 2016Q3

REPORT INFORMATION
  Report Type: Spontaneous
  Country: JP (occurrence: JP)
  Receive Date: 20160719
  Receipt Date: 20160719
  Transmission Date: 20161109
  Serious: Yes (Other)
  Sender: FDA-Public Use
  Company Number: JP-ASTRAZENECA-2016SE77597

PATIENT

DRUGS (2)
  1. IRESSA [Suspect]
     Active Substance: GEFITINIB
     Route: 048
  2. ERLOTINIB HYDROCHLORIDE. [Concomitant]
     Active Substance: ERLOTINIB HYDROCHLORIDE
     Dosage: DOSE UNKNOWN
     Route: 065

REACTIONS (1)
  - Disease progression [Unknown]
